FAERS Safety Report 21680428 (Version 1)
Quarter: 2022Q4

REPORT INFORMATION
  Report Type: Spontaneous
  Country: US (occurrence: US)
  Receive Date: 20221205
  Receipt Date: 20221205
  Transmission Date: 20230112
  Serious: Yes (Other)
  Sender: FDA-Public Use
  Company Number: US-CELLTRION INC.-2022US010099

PATIENT

DRUGS (1)
  1. INFLECTRA [Suspect]
     Active Substance: INFLIXIMAB-DYYB
     Indication: Colitis ulcerative
     Dosage: UNKNOWN
     Route: 065
     Dates: start: 202109

REACTIONS (8)
  - Fall [Unknown]
  - Upper limb fracture [Unknown]
  - Lymphoedema [Not Recovered/Not Resolved]
  - Influenza like illness [Recovered/Resolved]
  - Balance disorder [Unknown]
  - Weight increased [Unknown]
  - Fatigue [Unknown]
  - Swelling [Not Recovered/Not Resolved]

NARRATIVE: CASE EVENT DATE: 20210101
